FAERS Safety Report 9955793 (Version 1)
Quarter: 2014Q1

REPORT INFORMATION
  Report Type: Spontaneous
  Country: KR (occurrence: KR)
  Receive Date: 20140304
  Receipt Date: 20140304
  Transmission Date: 20141002
  Serious: Yes (Hospitalization)
  Sender: FDA-Public Use
  Company Number: PHHY2014KR024210

PATIENT
  Age: 46 Year
  Sex: Female

DRUGS (13)
  1. HALOPERIDOL [Suspect]
     Dosage: 10 MG, UNK
  2. HALOPERIDOL [Suspect]
     Dosage: 20 MG, UNK
  3. PREDNISOLONE [Concomitant]
     Indication: MYASTHENIA GRAVIS
     Dosage: 15 MG, UNK
  4. PREDNISOLONE [Concomitant]
     Dosage: 25 MG, UNK
     Dates: start: 201101
  5. PREDNISOLONE [Concomitant]
     Dosage: 10 MG, UNK
  6. ARIPIPRAZOLE [Concomitant]
     Indication: PSYCHIATRIC SYMPTOM
     Dosage: 15 MG, UNK
  7. ARIPIPRAZOLE [Concomitant]
     Indication: SCHIZOPHRENIA
  8. QUETIAPINE [Concomitant]
     Indication: PSYCHIATRIC SYMPTOM
     Dosage: 1200 MG, UNK
     Route: 065
  9. QUETIAPINE [Concomitant]
     Indication: SCHIZOPHRENIA
  10. PALIPERIDONE [Concomitant]
     Indication: PSYCHIATRIC SYMPTOM
  11. PALIPERIDONE [Concomitant]
     Indication: SCHIZOPHRENIA
  12. PROCYCLIDINE [Concomitant]
  13. CHLORPROMAZINE [Concomitant]
     Indication: SLEEP DISORDER

REACTIONS (1)
  - Tremor [Unknown]
